FAERS Safety Report 10224186 (Version 2)
Quarter: 2014Q2

REPORT INFORMATION
  Report Type: Spontaneous
  Country: US (occurrence: US)
  Receive Date: 20140609
  Receipt Date: 20140625
  Transmission Date: 20141212
  Serious: Yes (Other)
  Sender: FDA-Public Use
  Company Number: US-PFIZER INC-2014154190

PATIENT
  Age: 56 Year
  Sex: Female

DRUGS (2)
  1. PREMPRO [Suspect]
     Indication: HOT FLUSH
     Dosage: UNK [MEDROXYPROGESTERONE 0.3 MG/ ESTROGENS, CONJUGATED 1.5MG] FOR 5-6 WEEKS
     Route: 048
  2. PREMPRO [Suspect]
     Indication: NIGHT SWEATS
     Dosage: UNK, (0.625/5MG, DAILY)
     Route: 048
     Dates: start: 20140312, end: 20140610

REACTIONS (2)
  - Vaginal haemorrhage [Unknown]
  - Metrorrhagia [Unknown]
